FAERS Safety Report 6369984-9 (Version None)
Quarter: 2009Q3

REPORT INFORMATION
  Report Type: 
  Country: None (occurrence: None)
  Receive Date: 20090923
  Receipt Date: 20070403
  Transmission Date: 20100115
  Serious: Yes (Other)
  Sender: FDA-Public Use
  Company Number: US-ASTRAZENECA-2006UW07707

PATIENT
  Age: 18845 Day
  Sex: Female
  Weight: 113.4 kg

DRUGS (11)
  1. SEROQUEL [Suspect]
     Indication: HALLUCINATION
     Route: 048
     Dates: start: 20040101, end: 20040101
  2. SEROQUEL [Suspect]
     Route: 048
     Dates: start: 20040126
  3. STELAZINE [Suspect]
     Dates: start: 19720101
  4. THORAZINE [Suspect]
     Dates: start: 19740101
  5. TRILAFON [Suspect]
     Dates: start: 19820101
  6. MARIJUANA [Concomitant]
     Dates: start: 19690101, end: 19690101
  7. ZOLOFT [Concomitant]
     Dates: start: 20030908
  8. REMERON [Concomitant]
     Dates: start: 20030510
  9. ATIVAN [Concomitant]
     Dates: start: 20030510
  10. PRILOSEC [Concomitant]
     Indication: GASTROOESOPHAGEAL REFLUX DISEASE
     Dates: start: 20030510
  11. WELLBUTRIN [Concomitant]
     Dates: start: 20040522

REACTIONS (7)
  - BACK INJURY [None]
  - DIABETES MELLITUS [None]
  - IRRITABLE BOWEL SYNDROME [None]
  - PANCREATITIS ACUTE [None]
  - SINUS DISORDER [None]
  - SLEEP APNOEA SYNDROME [None]
  - TYPE 2 DIABETES MELLITUS [None]
